FAERS Safety Report 5759961-0 (Version None)
Quarter: 2008Q2

REPORT INFORMATION
  Report Type: 
  Country: None (occurrence: None)
  Receive Date: 20080605
  Receipt Date: 20080526
  Transmission Date: 20081010
  Serious: Yes (Life-Threatening, Hospitalization, Other)
  Sender: FDA-Public Use
  Company Number: CN-ROCHE-564720

PATIENT
  Age: 48 Year
  Sex: Female
  Weight: 49 kg

DRUGS (2)
  1. PEGASYS [Suspect]
     Dosage: GIVEN WEEKLY.
     Route: 058
     Dates: start: 20070625, end: 20080331
  2. RIBAVIRIN [Concomitant]

REACTIONS (9)
  - EVANS SYNDROME [None]
  - HAEMATEMESIS [None]
  - HAEMATOMA [None]
  - HAEMATURIA [None]
  - MELAENA [None]
  - MOUTH HAEMORRHAGE [None]
  - PETECHIAE [None]
  - PLATELET COUNT DECREASED [None]
  - PURPURA [None]
